FAERS Safety Report 12146379 (Version 1)
Quarter: 2016Q1

REPORT INFORMATION
  Report Type: Spontaneous
  Country: DE (occurrence: DE)
  Receive Date: 20160304
  Receipt Date: 20160304
  Transmission Date: 20160526
  Serious: Yes (Congenital Anomaly, Other)
  Sender: FDA-Public Use
  Company Number: DE-PFIZER INC-2016124044

PATIENT
  Age: 4 Week
  Sex: Female
  Weight: 2 kg

DRUGS (3)
  1. LYRICA [Suspect]
     Active Substance: PREGABALIN
     Indication: NEURALGIA
     Dosage: 1X150 MG/D UNTIL GW 12, THEN 75-0-75 MG/D;  0-33.3 GESTATIONAL WEEK
     Route: 064
     Dates: start: 20141109, end: 20150701
  2. BETAMETHASONE. [Concomitant]
     Active Substance: BETAMETHASONE
     Indication: MATERNAL THERAPY TO ENHANCE FOETAL LUNG MATURITY
     Dosage: 33.3-33.3 GESTATIONAL WEEK
     Route: 064
     Dates: start: 20150701, end: 20150701
  3. KRAEUTERBLUT [Concomitant]
     Indication: PROPHYLAXIS OF NEURAL TUBE DEFECT
     Dosage: 0.4 MG, DAILY, 1ST TRIMESTER
     Route: 064

REACTIONS (3)
  - Maternal exposure during pregnancy [Unknown]
  - Premature baby [Unknown]
  - Atrial septal defect [Recovering/Resolving]
